FAERS Safety Report 19478118 (Version 1)
Quarter: 2021Q2

REPORT INFORMATION
  Report Type: Other
  Country: GB (occurrence: GB)
  Receive Date: 20210630
  Receipt Date: 20210630
  Transmission Date: 20210717
  Serious: Yes (Other)
  Sender: FDA-Public Use
  Company Number: GB-STRIDES ARCOLAB LIMITED-2021SP006928

PATIENT
  Age: 5 Year
  Sex: Male
  Weight: 19.02 kg

DRUGS (5)
  1. CLOBAVATE [Suspect]
     Active Substance: CLOBETASONE BUTYRATE
     Indication: ECZEMA
  2. PREDNISOLONE. [Suspect]
     Active Substance: PREDNISOLONE
     Indication: ECZEMA
     Dosage: UNK, TAPERED DOWN EVERY 5 DAYS TO HALF A TABLET 20DAYS IN TOTAL
     Route: 048
  3. CLOBAVATE [Suspect]
     Active Substance: CLOBETASONE BUTYRATE
     Indication: ILL-DEFINED DISORDER
     Dosage: UNK, BID (APPLY A THIN LAYER TWICE A DAY)
     Route: 061
     Dates: end: 20210228
  4. PREDNISOLONE. [Suspect]
     Active Substance: PREDNISOLONE
     Indication: ILL-DEFINED DISORDER
     Dosage: 3 TABLETS (3 TABLETS FOR 5 DAYS TAPERED DOWN EVERY 5 DAYS TO HALF A TABLET 20DAYS IN TOTAL)
     Route: 048
  5. CETIRIZINE [Concomitant]
     Active Substance: CETIRIZINE HYDROCHLORIDE
     Indication: ILL-DEFINED DISORDER
     Dosage: UNK
     Route: 065

REACTIONS (8)
  - Swelling face [Not Recovered/Not Resolved]
  - Medication error [Unknown]
  - Erythema [Recovered/Resolved]
  - Pruritus [Not Recovered/Not Resolved]
  - Skin weeping [Recovered/Resolved]
  - Urticaria [Recovered/Resolved]
  - Skin atrophy [Recovered/Resolved]
  - Rash [Recovered/Resolved]

NARRATIVE: CASE EVENT DATE: 20210225
